FAERS Safety Report 13422482 (Version 3)
Quarter: 2017Q2

REPORT INFORMATION
  Report Type: Spontaneous
  Country: JP (occurrence: JP)
  Receive Date: 20170410
  Receipt Date: 20170608
  Transmission Date: 20170830
  Serious: Yes (Hospitalization)
  Sender: FDA-Public Use
  Company Number: JP-GLAXOSMITHKLINE-JP2017JPN048030

PATIENT
  Age: 84 Year
  Sex: Male

DRUGS (15)
  1. MUCODYNE [Concomitant]
     Active Substance: CARBOCYSTEINE
     Dosage: UNK
  2. HOKUNALIN TAPE [Concomitant]
     Active Substance: TULOBUTEROL
     Dosage: UNK
  3. SENNARIDE [Concomitant]
     Active Substance: SENNOSIDES A AND B
     Dosage: UNK
  4. PANTOSIN [Concomitant]
     Active Substance: PANTETHINE
     Dosage: UNK
  5. DEPAS [Concomitant]
     Active Substance: ETIZOLAM
     Dosage: UNK
  6. MUCOSAL [Concomitant]
     Dosage: UNK
  7. TETRAMIDE [Concomitant]
     Active Substance: MIANSERIN
     Dosage: UNK
  8. PLAVIX [Concomitant]
     Active Substance: CLOPIDOGREL BISULFATE
     Dosage: UNK
  9. AMLODIN [Concomitant]
     Active Substance: AMLODIPINE BESYLATE
     Dosage: UNK
  10. HARNAL [Concomitant]
     Active Substance: TAMSULOSIN HYDROCHLORIDE
     Dosage: UNK
  11. MAGNESIUM OXIDE. [Concomitant]
     Active Substance: MAGNESIUM OXIDE
     Dosage: UNK
  12. AVOLVE [Suspect]
     Active Substance: DUTASTERIDE
     Indication: BENIGN PROSTATIC HYPERPLASIA
     Dosage: 0.5 MG, QD
     Route: 048
  13. AMITIZA [Concomitant]
     Active Substance: LUBIPROSTONE
     Dosage: UNK
  14. MUCOSTA [Concomitant]
     Active Substance: REBAMIPIDE
     Dosage: UNK
  15. CYMBALTA [Concomitant]
     Active Substance: DULOXETINE HYDROCHLORIDE
     Dosage: UNK

REACTIONS (3)
  - Depression [Recovered/Resolved]
  - Apathy [Recovered/Resolved]
  - Mental disorder [Recovered/Resolved]
